FAERS Safety Report 21367768 (Version 1)
Quarter: 2022Q3

REPORT INFORMATION
  Report Type: Spontaneous
  Country: US (occurrence: US)
  Receive Date: 20220923
  Receipt Date: 20220923
  Transmission Date: 20221027
  Serious: No
  Sender: FDA-Public Use
  Company Number: US-PURDUE-USA-2021-0290441

PATIENT
  Age: 65 Year
  Sex: Female

DRUGS (2)
  1. ACETAMINOPHEN\OXYCODONE HYDROCHLORIDE [Suspect]
     Active Substance: ACETAMINOPHEN\OXYCODONE HYDROCHLORIDE
     Indication: Pain
     Dosage: 10-325 MG, 5 MONTHS AGO IN 2021
     Route: 048
     Dates: start: 20211221
  2. SUMATRIPTAN [Suspect]
     Active Substance: SUMATRIPTAN
     Indication: Migraine
     Dosage: UNKNOWN
     Route: 065

REACTIONS (5)
  - Dysgeusia [Unknown]
  - Migraine [Unknown]
  - Rash pruritic [Recovered/Resolved]
  - Therapeutic product effect decreased [Unknown]
  - Product administration error [Unknown]

NARRATIVE: CASE EVENT DATE: 20211221
